FAERS Safety Report 7281165-3 (Version None)
Quarter: 2011Q1

REPORT INFORMATION
  Report Type: 
  Country: None (occurrence: None)
  Receive Date: 20110208
  Receipt Date: 20110131
  Transmission Date: 20110831
  Serious: Yes (Death)
  Sender: FDA-Public Use
  Company Number: CHPA2011US01991

PATIENT
  Age: 69 Year
  Sex: Female

DRUGS (4)
  1. AMLODIPINE [Suspect]
     Route: 048
  2. CHLORPHENIRAMINE MALEATE [Suspect]
     Route: 048
  3. ZOLPIDEM [Suspect]
     Route: 048
  4. DEXTROMETHORPHAN HYDROBROMIDE [Suspect]
     Route: 048

REACTIONS (1)
  - COMPLETED SUICIDE [None]
